FAERS Safety Report 21340298 (Version 1)
Quarter: 2022Q3

REPORT INFORMATION
  Report Type: Spontaneous
  Country: US (occurrence: None)
  Receive Date: 20220915
  Receipt Date: 20220915
  Transmission Date: 20221027
  Serious: No
  Sender: FDA-Public Use
  Company Number: None

PATIENT
  Sex: Male

DRUGS (3)
  1. RINVOQ [Suspect]
     Active Substance: UPADACITINIB
     Indication: Gastrointestinal inflammation
     Dosage: FREQUENCY : DAILY;?
     Route: 048
     Dates: start: 20220804
  2. RINVOQ [Suspect]
     Active Substance: UPADACITINIB
     Indication: Colitis
  3. RINVOQ [Suspect]
     Active Substance: UPADACITINIB
     Indication: Colitis

REACTIONS (2)
  - Drug ineffective [None]
  - Condition aggravated [None]
